FAERS Safety Report 6278595-5 (Version None)
Quarter: 2009Q3

REPORT INFORMATION
  Report Type: 
  Country: None (occurrence: None)
  Receive Date: 20090722
  Receipt Date: 20090116
  Transmission Date: 20100115
  Serious: No
  Sender: FDA-Public Use
  Company Number: US-BAUSCH-2009BL000196

PATIENT
  Age: 45 Year
  Sex: Female
  Weight: 88 kg

DRUGS (3)
  1. OPCON-A [Suspect]
     Indication: EYE PRURITUS
     Route: 047
     Dates: start: 20081101, end: 20081101
  2. SYNTHROID [Concomitant]
     Indication: THYROID DISORDER
     Route: 048
     Dates: start: 20040701
  3. CYTOMEL [Concomitant]
     Indication: THYROID DISORDER
     Route: 048
     Dates: start: 20040701

REACTIONS (1)
  - MYDRIASIS [None]
